FAERS Safety Report 7557143-3 (Version None)
Quarter: 2011Q2

REPORT INFORMATION
  Report Type: 
  Country: None (occurrence: None)
  Receive Date: 20110616
  Receipt Date: 20110616
  Transmission Date: 20111010
  Serious: Yes (Hospitalization)
  Sender: FDA-Public Use
  Company Number: None

PATIENT
  Age: 67 Year
  Sex: Female
  Weight: 136 kg

DRUGS (13)
  1. GABAPENTIN [Concomitant]
  2. LISINOPRIL [Concomitant]
  3. CYANOCOBALAMIN [Concomitant]
  4. MORPHINE [Suspect]
     Indication: PROCEDURAL PAIN
     Dosage: PRN IV BOLUS (LESS THAN 24 HRS)
     Route: 040
  5. AMLODIPINE [Concomitant]
  6. CONJUGATED ESTROGEN [Concomitant]
  7. CLOTRIMAZOLE [Concomitant]
  8. ALBUTEROL SULFATE AND IPRATROPIUM BROMIDE [Concomitant]
  9. REGULAR INSULIN [Concomitant]
  10. NAFCILLIN [Concomitant]
  11. CARVEDILOL [Concomitant]
  12. TROSPIUM XR [Concomitant]
  13. GLIPIZIDE [Concomitant]

REACTIONS (4)
  - PROCEDURAL HYPOTENSION [None]
  - UNRESPONSIVE TO STIMULI [None]
  - MENTAL STATUS CHANGES [None]
  - RESPIRATORY FAILURE [None]
